FAERS Safety Report 8239724 (Version 2)
Quarter: 2012Q4

REPORT INFORMATION
  Report Type: 
  Country: US (occurrence: US)
  Receive Date: 20111110
  Receipt Date: 20120906
  Transmission Date: 20130627
  Serious: No
  Sender: FDA-Public Use
  Company Number: US-ASTRAZENECA-2010SE49388

PATIENT
  Age: 82 Year
  Sex: Female
  Weight: 98.2 kg

DRUGS (24)
  1. ARIMIDEX [Suspect]
     Route: 048
  2. ZESTRIL [Suspect]
     Route: 048
  3. METOPROLOL [Concomitant]
  4. PRILOSEC OTC [Concomitant]
     Route: 048
  5. XANAX [Concomitant]
     Indication: ANXIETY
     Dosage: 0.5 TO ONE (0.125 MG) EVERY BEDTIME AS NEEDED
     Route: 048
  6. ASPIRIN EC [Concomitant]
     Route: 048
  7. COREG [Concomitant]
     Route: 048
  8. METFORMIN HCL ER [Concomitant]
     Route: 048
  9. AMITRIPTYLINE HCL [Concomitant]
     Indication: INSOMNIA
     Dosage: ONE TO TWO TAB EVERY DAY AT BEDTIME
     Route: 048
  10. AMITRIPTYLINE HCL [Concomitant]
     Indication: PAIN
     Dosage: ONE TO TWO TAB EVERY DAY AT BEDTIME
     Route: 048
  11. AMITRIPTYLINE HCL [Concomitant]
     Indication: INSOMNIA
     Route: 048
  12. AMITRIPTYLINE HCL [Concomitant]
     Indication: PAIN
     Route: 048
  13. PRAVACHOL [Concomitant]
     Route: 048
  14. HYDROCHLOROTHIAZIDE [Concomitant]
     Indication: BLOOD PRESSURE ABNORMAL
     Route: 048
  15. HYDROCHLOROTHIAZIDE [Concomitant]
     Indication: BLOOD PRESSURE ABNORMAL
     Dosage: 1 TO 2 TABLET AT BED TIME
     Route: 048
  16. VOLTAREN [Concomitant]
     Indication: COSTOCHONDRITIS
     Dosage: APPLY 2 G FOUR TIMES EVERY DAY
     Route: 061
  17. OCUVITE LUTEIN [Concomitant]
     Dosage: ONE TWICE DAILY
     Route: 048
  18. CALCIUM PLUS D [Concomitant]
     Dosage: 600 MG 200 ONE PO BID
     Route: 048
  19. OMEGA 3 [Concomitant]
     Dosage: ONE TWICE DAILY
     Route: 048
  20. VITAMIN D [Concomitant]
     Dosage: ONE DAILY
     Route: 048
  21. TYLENOL [Concomitant]
     Indication: ARTHRITIS
     Dates: end: 20110727
  22. TYLENOL [Concomitant]
     Indication: ARTHRITIS
  23. DARVOCET N [Concomitant]
     Indication: PAIN
     Dosage: 100/650 MG ONE TWICE DAILY AS NEEDED
     Route: 048
  24. BENEFIBER [Concomitant]
     Dosage: TOW TBSP DAILY

REACTIONS (6)
  - Hypertension [Unknown]
  - Type 2 diabetes mellitus [Unknown]
  - Type V hyperlipidaemia [Unknown]
  - Heart rate irregular [Unknown]
  - Abdominal pain upper [Unknown]
  - Drug hypersensitivity [Unknown]
